FAERS Safety Report 7766968-0 (Version None)
Quarter: 2011Q3

REPORT INFORMATION
  Report Type: 
  Country: None (occurrence: None)
  Receive Date: 20110901
  Receipt Date: 20110103
  Transmission Date: 20111222
  Serious: Yes (Other)
  Sender: FDA-Public Use
  Company Number: 261936USA

PATIENT
  Age: 9 Year
  Sex: Male

DRUGS (1)
  1. ETHOSUXIMIDE [Suspect]
     Dosage: 250MG/5 ML, ORAL
     Route: 048
     Dates: start: 20100909, end: 20101215

REACTIONS (4)
  - SYSTEMIC LUPUS ERYTHEMATOSUS [None]
  - ARTHRALGIA [None]
  - JOINT SWELLING [None]
  - OCULAR HYPERAEMIA [None]
